FAERS Safety Report 20685456 (Version 1)
Quarter: 2022Q2

REPORT INFORMATION
  Report Type: Spontaneous
  Country: US (occurrence: US)
  Receive Date: 20220407
  Receipt Date: 20220407
  Transmission Date: 20220721
  Serious: Yes (Other)
  Sender: FDA-Public Use
  Company Number: US-BRACCO-2022US01243

PATIENT
  Age: 0 Year
  Sex: Female

DRUGS (1)
  1. CYSTOGRAFIN [Suspect]
     Active Substance: DIATRIZOATE MEGLUMINE
     Indication: Cystogram
     Dosage: UNK
     Dates: start: 20220310, end: 20220310

REACTIONS (1)
  - Urinary tract infection pseudomonal [Unknown]

NARRATIVE: CASE EVENT DATE: 20220301
